FAERS Safety Report 4322974-X (Version None)
Quarter: 2004Q1

REPORT INFORMATION
  Report Type: 
  Country: None (occurrence: None)
  Receive Date: 20040324
  Receipt Date: 20040324
  Transmission Date: 20041129
  Serious: No
  Sender: FDA-Public Use
  Company Number: None

PATIENT
  Age: 54 Year
  Sex: Male
  Weight: 79.3 kg

DRUGS (20)
  1. VORICONAZOLE TABLETS (VFEND, PFIZER), 200 MG [Suspect]
     Indication: BONE MARROW TRANSPLANT
     Dosage: 200 MG PO BID
     Route: 048
     Dates: start: 20030812, end: 20030816
  2. VORICONAZOLE TABLETS (VFEND, PFIZER), 200 MG [Suspect]
     Indication: CHRONIC LYMPHOCYTIC LEUKAEMIA
     Dosage: 200 MG PO BID
     Route: 048
     Dates: start: 20030812, end: 20030816
  3. ACYCLOVIR [Concomitant]
  4. ALLOPURINOL [Concomitant]
  5. BACTRIM DS [Concomitant]
  6. BUSULFAN [Concomitant]
  7. CEFEPIME [Concomitant]
  8. CYCLOPHOSPHAMIDE [Concomitant]
  9. DONAZEPAM [Concomitant]
  10. CYCLOSPORINE [Concomitant]
  11. DEXAMETHASONE [Concomitant]
  12. DILTIAZEM [Concomitant]
  13. ENOXAPARIN SODIUM [Concomitant]
  14. ETOPOSIDE [Concomitant]
  15. FAMOTIDINE [Concomitant]
  16. FILIGRASTIM [Concomitant]
  17. FUROSEMIDE [Concomitant]
  18. METHYLPREDNISOLONE [Concomitant]
  19. ZOSYN [Concomitant]
  20. URSODIOL [Concomitant]

REACTIONS (2)
  - NIGHTMARE [None]
  - VISUAL DISTURBANCE [None]
